FAERS Safety Report 17811473 (Version 1)
Quarter: 2020Q2

REPORT INFORMATION
  Report Type: Spontaneous
  Country: US (occurrence: US)
  Receive Date: 20200520
  Receipt Date: 20200520
  Transmission Date: 20200714
  Serious: Yes (Hospitalization)
  Sender: FDA-Public Use
  Company Number: None

PATIENT
  Age: 63 Year
  Sex: Female

DRUGS (7)
  1. POT CHLORIDE [Concomitant]
     Active Substance: POTASSIUM CHLORIDE
  2. DIOVAN [Concomitant]
     Active Substance: VALSARTAN
  3. MOBIC [Concomitant]
     Active Substance: MELOXICAM
  4. PLENBIL [Concomitant]
  5. ENBREL [Suspect]
     Active Substance: ETANERCEPT
     Indication: RHEUMATOID ARTHRITIS
     Route: 058
     Dates: start: 20190711
  6. ATENOLOL. [Concomitant]
     Active Substance: ATENOLOL
  7. METHOTREXATE. [Concomitant]
     Active Substance: METHOTREXATE

REACTIONS (2)
  - Abdominal operation [None]
  - Bile duct obstruction [None]

NARRATIVE: CASE EVENT DATE: 20200505
